FAERS Safety Report 16190180 (Version 1)
Quarter: 2019Q2

REPORT INFORMATION
  Report Type: Spontaneous
  Country: US (occurrence: US)
  Receive Date: 20190412
  Receipt Date: 20190412
  Transmission Date: 20190711
  Serious: Yes (Death)
  Sender: FDA-Public Use
  Company Number: US-BAYER-2019-074597

PATIENT
  Age: 69 Year
  Sex: Female

DRUGS (1)
  1. BETASERON [Suspect]
     Active Substance: INTERFERON BETA-1B
     Dosage: 0.3 DF, QOD

REACTIONS (1)
  - Death [Fatal]

NARRATIVE: CASE EVENT DATE: 20180701
